FAERS Safety Report 9677553 (Version 1)
Quarter: 2013Q4

REPORT INFORMATION
  Report Type: Spontaneous
  Country: US (occurrence: US)
  Receive Date: 20131108
  Receipt Date: 20131108
  Transmission Date: 20140711
  Serious: No
  Sender: FDA-Public Use
  Company Number: US-009507513-1311USA001897

PATIENT
  Age: 69 Year
  Sex: Female

DRUGS (4)
  1. JANUMET XR [Suspect]
     Indication: TYPE 2 DIABETES MELLITUS
     Dosage: 50MG/1000MG ONCE DAILY
     Route: 048
     Dates: start: 201309
  2. GLIMEPIRIDE [Concomitant]
  3. LOSARTAN POTASSIUM [Concomitant]
  4. SIMVASTATIN [Concomitant]

REACTIONS (1)
  - Drug ineffective [Not Recovered/Not Resolved]
